FAERS Safety Report 25595900 (Version 1)
Quarter: 2025Q3

REPORT INFORMATION
  Report Type: Spontaneous
  Country: EU (occurrence: EU)
  Receive Date: 20250723
  Receipt Date: 20250723
  Transmission Date: 20251020
  Serious: Yes (Hospitalization, Other)
  Sender: AUROBINDO
  Company Number: EU-LRB-01072359

PATIENT
  Age: 48 Year
  Sex: Female
  Weight: 119 kg

DRUGS (1)
  1. DIMETHYL FUMARATE [Suspect]
     Active Substance: DIMETHYL FUMARATE
     Indication: Multiple sclerosis
     Dosage: 2 DOSAGE FORM, ONCE A DAY
     Route: 048
     Dates: start: 20150415

REACTIONS (3)
  - Staphylococcal sepsis [Recovering/Resolving]
  - Pulmonary embolism [Recovering/Resolving]
  - Septic embolus [Recovering/Resolving]
